FAERS Safety Report 23526303 (Version 1)
Quarter: 2024Q1

REPORT INFORMATION
  Report Type: Spontaneous
  Country: IN (occurrence: IN)
  Receive Date: 20240215
  Receipt Date: 20240215
  Transmission Date: 20240410
  Serious: Yes (Other)
  Sender: FDA-Public Use
  Company Number: IN-MYLANLABS-2024M1014345

PATIENT
  Age: 18 Month
  Sex: Female

DRUGS (5)
  1. CARBOPLATIN [Suspect]
     Active Substance: CARBOPLATIN
     Indication: Atypical teratoid/rhabdoid tumour of CNS
     Dosage: 500 MILLIGRAM/SQ. METER, CYCLE (ON DAY 3; REPEATED EVERY THREE WEEKS FOR FOUR CYCLES)
     Route: 042
  2. ETOPOSIDE [Suspect]
     Active Substance: ETOPOSIDE
     Indication: Atypical teratoid/rhabdoid tumour of CNS
     Dosage: 100 MILLIGRAM/SQ. METER, CYCLE (ON DAY1 TO DAY3 REPEATED EVERY THREE WEEKS FOR FOUR CYCLES)
     Route: 042
  3. IFOSFAMIDE [Suspect]
     Active Substance: IFOSFAMIDE
     Indication: Atypical teratoid/rhabdoid tumour of CNS
     Dosage: 2 GRAM PER SQUARE METRE, CYCLE (2?G/M2 ON DAY?1 TO DAY?3 REPEATED EVERY THREE WEEKS FOR FOUR CYCLES)
     Route: 042
  4. MESNA [Suspect]
     Active Substance: MESNA
     Indication: Prophylaxis
     Dosage: UNK UNK, CYCLE (REPEATED EVERY THREE WEEKS FOR FOUR CYCLES)
     Route: 065
  5. MESNA [Suspect]
     Active Substance: MESNA
     Indication: Renal disorder

REACTIONS (3)
  - Leukopenia [Unknown]
  - Neutropenia [Unknown]
  - Off label use [Unknown]
